FAERS Safety Report 11549515 (Version 1)
Quarter: 2015Q3

REPORT INFORMATION
  Report Type: Spontaneous
  Country: US (occurrence: US)
  Receive Date: 20150924
  Receipt Date: 20150924
  Transmission Date: 20151125
  Serious: Yes (Hospitalization)
  Sender: FDA-Public Use
  Company Number: US-INCYTE CORPORATION-2015IN003378

PATIENT
  Sex: Male

DRUGS (17)
  1. MACROBID [Concomitant]
     Active Substance: NITROFURANTOIN\NITROFURANTOIN MONOHYDRATE
  2. ATENOLOL. [Concomitant]
     Active Substance: ATENOLOL
  3. AMPICILLIN [Concomitant]
     Active Substance: AMPICILLIN
  4. KLONOPIN [Concomitant]
     Active Substance: CLONAZEPAM
  5. LIDOCAINE. [Concomitant]
     Active Substance: LIDOCAINE
  6. ALLOPURINOL. [Concomitant]
     Active Substance: ALLOPURINOL
  7. HYDROCODONE [Concomitant]
     Active Substance: HYDROCODONE
  8. KLOR-CON [Concomitant]
     Active Substance: POTASSIUM CHLORIDE
  9. CELEXA [Concomitant]
     Active Substance: CITALOPRAM HYDROBROMIDE
  10. JAKAFI [Suspect]
     Active Substance: RUXOLITINIB
     Indication: PRODUCT USED FOR UNKNOWN INDICATION
     Dosage: 15 MG, EVERY 12 HOURS
     Route: 048
     Dates: start: 20150424
  11. JAKAFI [Suspect]
     Active Substance: RUXOLITINIB
     Dosage: 15 MG, BID (1 TABLET EVERY 12 HOURS)
     Route: 048
     Dates: start: 20150319, end: 20150713
  12. LACTULOSE. [Concomitant]
     Active Substance: LACTULOSE
  13. COLACE [Concomitant]
     Active Substance: DOCUSATE SODIUM
  14. METHADONE [Concomitant]
     Active Substance: METHADONE HYDROCHLORIDE
  15. ASPIRIN. [Concomitant]
     Active Substance: ASPIRIN
  16. VITAMIN D2 [Concomitant]
     Active Substance: ERGOCALCIFEROL
  17. ATORVASTATIN [Concomitant]
     Active Substance: ATORVASTATIN

REACTIONS (1)
  - Hospitalisation [Unknown]
